FAERS Safety Report 23429697 (Version 1)
Quarter: 2024Q1

REPORT INFORMATION
  Report Type: Spontaneous
  Country: IN (occurrence: IN)
  Receive Date: 20240122
  Receipt Date: 20240122
  Transmission Date: 20240410
  Serious: Yes (Hospitalization, Other)
  Sender: FDA-Public Use
  Company Number: IN-PFIZER INC-202200444654

PATIENT
  Age: 55 Year
  Sex: Female

DRUGS (1)
  1. LORLATINIB [Suspect]
     Active Substance: LORLATINIB
     Dosage: 100 MG, 1X/DAY
     Route: 048
     Dates: start: 20220311

REACTIONS (14)
  - Blood triglycerides increased [Unknown]
  - Altered state of consciousness [Unknown]
  - Vomiting [Unknown]
  - Dyspnoea [Unknown]
  - Asthma [Unknown]
  - Weight increased [Unknown]
  - Procedural pain [Unknown]
  - Sensory disturbance [Unknown]
  - Headache [Unknown]
  - Blood cholesterol increased [Unknown]
  - Neoplasm progression [Unknown]
  - Blood pressure increased [Unknown]
  - Heart rate increased [Unknown]
  - Pyrexia [Unknown]

NARRATIVE: CASE EVENT DATE: 20220705
